FAERS Safety Report 19087345 (Version 1)
Quarter: 2021Q2

REPORT INFORMATION
  Report Type: Spontaneous
  Country: US (occurrence: US)
  Receive Date: 20210402
  Receipt Date: 20210402
  Transmission Date: 20210717
  Serious: Yes (Other)
  Sender: FDA-Public Use
  Company Number: None

PATIENT
  Sex: Female

DRUGS (15)
  1. GABAPENTIN. [Concomitant]
     Active Substance: GABAPENTIN
  2. CEFADROXIL. [Concomitant]
     Active Substance: CEFADROXIL
  3. FEXOFENADINE [Concomitant]
     Active Substance: FEXOFENADINE HYDROCHLORIDE
  4. COSENTYX [Suspect]
     Active Substance: SECUKINUMAB
     Indication: PSORIASIS
     Dosage: 2 PENS Q4WK SQ
     Route: 058
     Dates: start: 20180406
  5. CLOBETASOL [Concomitant]
     Active Substance: CLOBETASOL
  6. LOSARTAN POT [Concomitant]
     Active Substance: LOSARTAN POTASSIUM
  7. MUPIROCIN. [Concomitant]
     Active Substance: MUPIROCIN
  8. PANTOPRAZOLE [Concomitant]
     Active Substance: PANTOPRAZOLE
  9. CELECOXIB. [Concomitant]
     Active Substance: CELECOXIB
  10. DOXYCYCL HYC [Concomitant]
  11. SMZ/TMP DS [Concomitant]
     Active Substance: SULFAMETHOXAZOLE\TRIMETHOPRIM
  12. TRAMADOL HCL [Concomitant]
     Active Substance: TRAMADOL HYDROCHLORIDE
  13. FLUOCIN ACET OIL [Concomitant]
  14. HIBICLENS [Concomitant]
     Active Substance: CHLORHEXIDINE GLUCONATE
  15. HYDROCO/APAP [Concomitant]
     Active Substance: ACETAMINOPHEN\HYDROCODONE

REACTIONS (3)
  - Intentional dose omission [None]
  - Breast cancer [None]
  - Skin discolouration [None]
